FAERS Safety Report 7307705-3 (Version None)
Quarter: 2011Q1

REPORT INFORMATION
  Report Type: 
  Country: None (occurrence: None)
  Receive Date: 20110223
  Receipt Date: 20110201
  Transmission Date: 20110831
  Serious: Yes (Other)
  Sender: FDA-Public Use
  Company Number: NO-PFIZER INC-2011016825

PATIENT
  Age: 30 Year
  Sex: Female

DRUGS (4)
  1. LYRICA [Suspect]
     Indication: INSOMNIA
     Dosage: UNK
  2. LYRICA [Suspect]
     Indication: GENERALISED ANXIETY DISORDER
  3. ZOPICLONE [Suspect]
     Indication: INSOMNIA
     Dosage: UNK
  4. ZOPICLONE [Suspect]
     Indication: GENERALISED ANXIETY DISORDER

REACTIONS (1)
  - DRUG ABUSE [None]
